FAERS Safety Report 7469676-9 (Version None)
Quarter: 2011Q2

REPORT INFORMATION
  Report Type: 
  Country: None (occurrence: None)
  Receive Date: 20110429
  Receipt Date: 20110415
  Transmission Date: 20111010
  Serious: Yes (Hospitalization)
  Sender: FDA-Public Use
  Company Number: 1000020282

PATIENT
  Age: 75 Year
  Sex: Male

DRUGS (5)
  1. TICLOPIDINE HYDROCHLORIDE [Suspect]
     Dosage: 500 MG (250 MG,2 IN 1 D)
  2. CITALOPRAM HYDROBROMIDE [Suspect]
     Dosage: 20 MG (20 MG,1 IN 1 D)
  3. CIMETIDINE [Suspect]
     Indication: GASTRODUODENAL ULCER
  4. QUETIAPINE FUMARATE [Suspect]
     Dosage: 200 MG (100 MG,2 IN 1 D)
  5. DONEPEZIL HCL [Suspect]
     Dosage: 10 MG (10 MG,1 IN 1 D)

REACTIONS (3)
  - DRUG INTERACTION [None]
  - BLOOD GLUCOSE INCREASED [None]
  - SEROTONIN SYNDROME [None]
